FAERS Safety Report 16197498 (Version 1)
Quarter: 2019Q2

REPORT INFORMATION
  Report Type: Spontaneous
  Country: US (occurrence: US)
  Receive Date: 20190311
  Receipt Date: 20190311
  Transmission Date: 20190711
  Serious: Yes (Hospitalization)
  Sender: FDA-Public Use
  Company Number: None

PATIENT
  Age: 64 Year
  Sex: Male

DRUGS (7)
  1. POTASSIUM [Concomitant]
     Active Substance: POTASSIUM
  2. ATENOLOL. [Concomitant]
     Active Substance: ATENOLOL
  3. ALEVE [Concomitant]
     Active Substance: NAPROXEN SODIUM
  4. ELIQUIS [Concomitant]
     Active Substance: APIXABAN
  5. OLM MED/AMLO [Concomitant]
  6. HUMIRA [Suspect]
     Active Substance: ADALIMUMAB
     Indication: CROHN^S DISEASE
     Dosage: ?          OTHER DOSE:160 MG 80 MG;OTHER FREQUENCY:DAY 1; DAY 15;?
     Route: 058
     Dates: start: 20190104
  7. VOTRIENT [Concomitant]
     Active Substance: PAZOPANIB HYDROCHLORIDE

REACTIONS (1)
  - Adverse drug reaction [None]

NARRATIVE: CASE EVENT DATE: 20190104
